FAERS Safety Report 21103558 (Version 3)
Quarter: 2022Q3

REPORT INFORMATION
  Report Type: Report from Study
  Country: GB (occurrence: None)
  Receive Date: 20220720
  Receipt Date: 20220923
  Transmission Date: 20221027
  Serious: Yes (Life-Threatening, Hospitalization)
  Sender: FDA-Public Use
  Company Number: GB-ROCHE-3141919

PATIENT
  Age: 75 Year
  Sex: Male
  Weight: 66 kg

DRUGS (5)
  1. ATEZOLIZUMAB [Suspect]
     Active Substance: ATEZOLIZUMAB
     Indication: Pleural mesothelioma malignant
     Dosage: ON 27/MAY/2022, RECEIVED LAST DOSE OF ATEZOLIZUMAB BEFORE SAE.
     Route: 041
     Dates: start: 20211112
  2. BEVACIZUMAB [Suspect]
     Active Substance: BEVACIZUMAB
     Indication: Pleural mesothelioma malignant
     Dosage: ON 27/MAY/2022, RECEIVED LAST DOSE OF BEVACIZUMAB BEFORE SAE.
     Route: 042
     Dates: start: 20211112
  3. CARBOPLATIN [Suspect]
     Active Substance: CARBOPLATIN
     Indication: Pleural mesothelioma malignant
     Dosage: ON 06/MAY/2022, RECEIVED LAST DOSE OF CARBOPLATIN BEFORE SAE.
     Route: 042
     Dates: start: 20211112
  4. PEMETREXED [Suspect]
     Active Substance: PEMETREXED
     Indication: Pleural mesothelioma malignant
     Dosage: ON 21/JAN/2022, RECEIVED LAST DOSE OF PEMETREXED BEFORE SAE.
     Route: 042
     Dates: start: 20211112
  5. LEVOTHYROXINE [Concomitant]
     Active Substance: LEVOTHYROXINE
     Indication: Hypothyroidism

REACTIONS (2)
  - Hypothyroidism [Recovered/Resolved with Sequelae]
  - Hypotension [Unknown]

NARRATIVE: CASE EVENT DATE: 20220630
